FAERS Safety Report 6916502-X (Version None)
Quarter: 2010Q3

REPORT INFORMATION
  Report Type: 
  Country: None (occurrence: None)
  Receive Date: 20100810
  Receipt Date: 20100730
  Transmission Date: 20110219
  Serious: Yes (Hospitalization)
  Sender: FDA-Public Use
  Company Number: JP-BAYER-201013666BYL

PATIENT
  Age: 75 Year
  Sex: Female
  Weight: 36 kg

DRUGS (12)
  1. NEXAVAR [Suspect]
     Indication: HEPATIC NEOPLASM MALIGNANT
     Dosage: UNIT DOSE: 200 MG
     Route: 048
     Dates: start: 20100528, end: 20100718
  2. AMOXAN [Concomitant]
     Indication: PAIN MANAGEMENT
     Dosage: UNIT DOSE: 10 MG
     Route: 048
     Dates: start: 20100602
  3. OPALMON [Concomitant]
     Indication: PAIN MANAGEMENT
     Dosage: UNIT DOSE: 5 ?G
     Route: 048
     Dates: start: 20100603
  4. MAGMITT [Concomitant]
     Indication: CONSTIPATION
     Dosage: UNIT DOSE: 330 MG
     Route: 048
     Dates: start: 20100614
  5. OXINORM [Concomitant]
     Indication: PAIN MANAGEMENT
     Dosage: UNIT DOSE: 25 MG
     Route: 048
     Dates: start: 20100608
  6. GABAPEN [Concomitant]
     Indication: PAIN MANAGEMENT
     Dosage: UNIT DOSE: 200 MG
     Route: 048
     Dates: start: 20100607
  7. ZYPREXA [Concomitant]
     Indication: PAIN MANAGEMENT
     Dosage: UNIT DOSE: 2.5 MG
     Route: 048
     Dates: start: 20100611
  8. DUROTEP [Concomitant]
     Indication: PAIN MANAGEMENT
     Route: 062
     Dates: start: 20100607
  9. GOSHA-JINKI-GAN [Concomitant]
     Indication: PAIN MANAGEMENT
     Dosage: UNIT DOSE: 2.5 G
     Route: 048
     Dates: start: 20100612
  10. DECADRON [Concomitant]
     Dosage: UNIT DOSE: 0.5 MG
     Route: 048
     Dates: start: 20100608, end: 20100621
  11. OXYCONTIN [Concomitant]
     Dosage: UNIT DOSE: 5 MG
     Route: 048
     Dates: start: 20100531, end: 20100607
  12. ADALAT CC [Concomitant]
     Dosage: UNIT DOSE: 20 MG
     Route: 048
     Dates: start: 20100603, end: 20100610

REACTIONS (1)
  - COLITIS ISCHAEMIC [None]
